FAERS Safety Report 15390845 (Version 2)
Quarter: 2018Q4

REPORT INFORMATION
  Report Type: Spontaneous
  Country: US (occurrence: US)
  Receive Date: 20180917
  Receipt Date: 20181019
  Transmission Date: 20190204
  Serious: No
  Sender: FDA-Public Use
  Company Number: US-SA-2018SA257311

PATIENT
  Age: 66 Year
  Sex: Female

DRUGS (1)
  1. APIDRA [Suspect]
     Active Substance: INSULIN GLULISINE
     Indication: DIABETES MELLITUS
     Dosage: UNK, QM 2 VIALS VIA PUMP
     Dates: start: 201707

REACTIONS (2)
  - Blood glucose increased [Unknown]
  - Drug ineffective [Unknown]
